FAERS Safety Report 14636498 (Version 2)
Quarter: 2018Q2

REPORT INFORMATION
  Report Type: Spontaneous
  Country: FR (occurrence: FR)
  Receive Date: 20180314
  Receipt Date: 20180427
  Transmission Date: 20180711
  Serious: Yes (Hospitalization, Disabling, Congenital Anomaly, Other)
  Sender: FDA-Public Use
  Company Number: FR-ABBVIE-18P-056-2284841-00

PATIENT
  Sex: Male

DRUGS (3)
  1. DEPAKINE CHRONO [Suspect]
     Active Substance: VALPROATE SODIUM
     Indication: MATERNAL EXPOSURE TIMING UNSPECIFIED
     Route: 064
  2. MICROPAKINE [Suspect]
     Active Substance: VALPROIC ACID
     Indication: EPILEPSY
     Dosage: IN THE EVENING
     Route: 065
  3. EPITOMAX [Suspect]
     Active Substance: TOPIRAMATE
     Indication: EPILEPSY
     Dosage: IN THE MORNING AND IN THE EVENING
     Route: 065

REACTIONS (27)
  - Breath holding [Recovered/Resolved]
  - Epilepsy [Unknown]
  - Scaphocephaly [Unknown]
  - Foetal exposure during pregnancy [Unknown]
  - Visual impairment [Unknown]
  - Cryptorchism [Unknown]
  - Respiratory distress [Recovered/Resolved]
  - Dysmorphism [Unknown]
  - Joint laxity [Unknown]
  - Hypocalcaemia [Recovered/Resolved]
  - Hypertelorism of orbit [Unknown]
  - Talipes [Unknown]
  - Congenital joint malformation [Unknown]
  - Learning disorder [Unknown]
  - Inguinal hernia [Unknown]
  - Fine motor delay [Unknown]
  - Abnormal behaviour [Unknown]
  - Enuresis [Unknown]
  - Deformity thorax [Unknown]
  - Cognitive disorder [Unknown]
  - Disturbance in attention [Unknown]
  - Personality disorder [Unknown]
  - Language disorder [Unknown]
  - Strabismus [Unknown]
  - Cardiac murmur [Unknown]
  - Insomnia [Unknown]
  - Autism spectrum disorder [Unknown]

NARRATIVE: CASE EVENT DATE: 200312
